FAERS Safety Report 24988266 (Version 2)
Quarter: 2025Q1

REPORT INFORMATION
  Report Type: Spontaneous
  Country: JP (occurrence: JP)
  Receive Date: 20250220
  Receipt Date: 20250306
  Transmission Date: 20250408
  Serious: Yes (Death, Hospitalization, Other)
  Sender: MERCK SHARP & DOHME LLC
  Company Number: JP-009507513-2256009

PATIENT
  Age: 77 Year
  Sex: Male

DRUGS (2)
  1. BELSOMRA [Suspect]
     Active Substance: SUVOREXANT
     Indication: Insomnia
     Route: 048
     Dates: start: 20250129, end: 20250203
  2. VORICONAZOLE [Suspect]
     Active Substance: VORICONAZOLE
     Indication: Bronchopulmonary aspergillosis
     Dosage: 120 MG TWICE DAILY
     Route: 048
     Dates: start: 20250131, end: 20250205

REACTIONS (4)
  - Somnolence [Fatal]
  - Loss of consciousness [Unknown]
  - Wrong product administered [Unknown]
  - Hypercapnia [Fatal]

NARRATIVE: CASE EVENT DATE: 20250131
